FAERS Safety Report 9905361 (Version 2)
Quarter: 2014Q1

REPORT INFORMATION
  Report Type: Spontaneous
  Country: US (occurrence: US)
  Receive Date: 20140218
  Receipt Date: 20140311
  Transmission Date: 20141002
  Serious: No
  Sender: FDA-Public Use
  Company Number: US-PFIZER INC-2014040600

PATIENT
  Sex: Male

DRUGS (4)
  1. IBUPROFEN [Suspect]
     Indication: BACK PAIN
     Dosage: EVERY NIGHT OF 600 UNITS, AS NEEDED
  2. IBUPROFEN [Suspect]
     Indication: SCIATICA
  3. IBUPROFEN [Suspect]
     Indication: INFLAMMATION
  4. IBUPROFEN [Suspect]
     Indication: PAIN

REACTIONS (3)
  - Drug ineffective [Unknown]
  - Insomnia [Unknown]
  - Frustration [Unknown]
